FAERS Safety Report 5808021-9 (Version None)
Quarter: 2008Q3

REPORT INFORMATION
  Report Type: 
  Country: None (occurrence: None)
  Receive Date: 20080711
  Receipt Date: 20080701
  Transmission Date: 20090109
  Serious: Yes (Hospitalization, Other)
  Sender: FDA-Public Use
  Company Number: US-PFIZER INC-2008055646

PATIENT
  Age: 72 Year
  Sex: Female

DRUGS (12)
  1. LYRICA [Suspect]
  2. HERPES VIRUS VACCINE [Suspect]
  3. ACIPHEX [Concomitant]
  4. PIROXICAM [Concomitant]
  5. PRAVASTATIN [Concomitant]
  6. AVAPRO [Concomitant]
  7. ALLEGRA [Concomitant]
  8. AMARYL [Concomitant]
  9. AMBIEN [Concomitant]
  10. CYMBALTA [Concomitant]
  11. ROBAXIN [Concomitant]
  12. ZYDONE [Concomitant]

REACTIONS (4)
  - BURNING SENSATION [None]
  - CEREBROVASCULAR ACCIDENT [None]
  - HERPES ZOSTER [None]
  - PRURITUS [None]
